FAERS Safety Report 14836623 (Version 1)
Quarter: 2018Q2

REPORT INFORMATION
  Report Type: Spontaneous
  Country: US (occurrence: US)
  Receive Date: 20180416
  Receipt Date: 20180416
  Transmission Date: 20180711
  Serious: Yes (Hospitalization)
  Sender: FDA-Public Use
  Company Number: None

PATIENT
  Age: 40 Year
  Sex: Male

DRUGS (1)
  1. VECAMYL [Suspect]
     Active Substance: MECAMYLAMINE HYDROCHLORIDE

REACTIONS (2)
  - Urinary tract infection [None]
  - Wound [None]
